FAERS Safety Report 23242141 (Version 1)
Quarter: 2023Q4

REPORT INFORMATION
  Report Type: Spontaneous
  Country: FR (occurrence: FR)
  Receive Date: 20231129
  Receipt Date: 20231129
  Transmission Date: 20240110
  Serious: Yes (Hospitalization)
  Sender: FDA-Public Use
  Company Number: None

PATIENT
  Age: 63 Year
  Sex: Male
  Weight: 76.3 kg

DRUGS (14)
  1. TRAMADOL [Suspect]
     Active Substance: TRAMADOL\TRAMADOL HYDROCHLORIDE
     Indication: Chordoma
     Dosage: 2 DOSAGE FORM
     Route: 048
     Dates: start: 20230908, end: 20230908
  2. OXYCODONE HYDROCHLORIDE [Suspect]
     Active Substance: OXYCODONE HYDROCHLORIDE
     Indication: Chordoma
     Dosage: 3 MILLIGRAM
     Route: 042
     Dates: start: 20230908, end: 20230908
  3. OXYCODONE HYDROCHLORIDE [Suspect]
     Active Substance: OXYCODONE HYDROCHLORIDE
     Dosage: 1 MILLIGRAM, QH
     Route: 042
     Dates: start: 20230908, end: 20230908
  4. GABAPENTIN [Suspect]
     Active Substance: GABAPENTIN
     Indication: Chordoma
     Dosage: 2 DOSAGE FORM
     Route: 048
     Dates: start: 20230908, end: 20230908
  5. ZOLPIDEM [Suspect]
     Active Substance: ZOLPIDEM TARTRATE
     Indication: Insomnia
     Dosage: 1 DOSAGE FORM
     Route: 048
     Dates: start: 20230908, end: 20230908
  6. ACUPAN [Suspect]
     Active Substance: NEFOPAM HYDROCHLORIDE
     Indication: Chordoma
     Dosage: 20 MILLIGRAM
     Route: 042
     Dates: start: 20230908, end: 20230908
  7. ACUPAN [Suspect]
     Active Substance: NEFOPAM HYDROCHLORIDE
     Dosage: 120 MILLIGRAM, QD
     Route: 042
     Dates: start: 20230908, end: 20230915
  8. SKENAN [Suspect]
     Active Substance: MORPHINE SULFATE
     Indication: Chordoma
     Dosage: 20 MILLIGRAM
     Route: 048
     Dates: start: 20230908, end: 20230908
  9. MORPHINE SULFATE [Suspect]
     Active Substance: MORPHINE SULFATE
     Indication: Chordoma
     Dosage: 2 DOSAGE FORM
     Route: 048
     Dates: start: 20230908, end: 20230908
  10. LOVENOX [Concomitant]
     Active Substance: ENOXAPARIN SODIUM
     Indication: Thrombosis prophylaxis
     Dosage: 4000 INTERNATIONAL UNIT, QD
     Route: 058
     Dates: start: 20230908, end: 20231006
  11. DOLIPRANE [Concomitant]
     Active Substance: ACETAMINOPHEN
     Indication: Pyrexia
     Dosage: 1 GRAM
     Route: 048
     Dates: start: 20230908
  12. AMOXICILLIN [Concomitant]
     Active Substance: AMOXICILLIN
     Indication: Intervertebral discitis
     Dosage: 12 GRAM, QD
     Route: 042
     Dates: start: 20230908, end: 20230908
  13. METOCLOPRAMIDE HYDROCHLORIDE [Concomitant]
     Active Substance: METOCLOPRAMIDE HYDROCHLORIDE
     Indication: Vomiting
     Dosage: 1 DOSAGE FORM
     Route: 042
     Dates: start: 20230907, end: 20230927
  14. Normacol lavement adultes [Concomitant]
     Indication: Constipation
     Dosage: 1 DOSAGE FORM
     Route: 054
     Dates: start: 20230908, end: 20231003

REACTIONS (2)
  - Respiratory distress [Recovered/Resolved]
  - Confusional state [Recovered/Resolved]

NARRATIVE: CASE EVENT DATE: 20230909
